FAERS Safety Report 9812514 (Version 2)
Quarter: 2014Q1

REPORT INFORMATION
  Report Type: Report from Study
  Country: JP (occurrence: JP)
  Receive Date: 20140113
  Receipt Date: 20140219
  Transmission Date: 20141002
  Serious: Yes (Death, Other)
  Sender: FDA-Public Use
  Company Number: JP-ROCHE-1331316

PATIENT
  Age: 78 Year
  Sex: Male

DRUGS (8)
  1. METHOXY POLYETHYLENE GLYCOL-EPOETIN BETA [Suspect]
     Indication: NEPHROGENIC ANAEMIA
     Route: 058
     Dates: start: 20121217, end: 20130121
  2. METHOXY POLYETHYLENE GLYCOL-EPOETIN BETA [Suspect]
     Indication: NEPHROGENIC ANAEMIA
     Route: 058
     Dates: start: 20130204, end: 20131015
  3. METHOXY POLYETHYLENE GLYCOL-EPOETIN BETA [Suspect]
     Indication: NEPHROGENIC ANAEMIA
     Route: 058
     Dates: start: 20131029, end: 20131224
  4. TAKEPRON [Concomitant]
     Route: 048
  5. ONEALFA [Concomitant]
     Route: 048
     Dates: end: 20130319
  6. ONEALFA [Concomitant]
     Route: 048
     Dates: start: 20130320
  7. UREPEARL [Concomitant]
     Dosage: HASTE
     Route: 003
  8. FOSRENOL [Concomitant]
     Indication: PROPHYLAXIS
     Route: 048
     Dates: start: 20131126

REACTIONS (4)
  - Respiratory arrest [Fatal]
  - Renal impairment [Unknown]
  - Pulmonary oedema [Unknown]
  - Hyperphosphataemia [Recovering/Resolving]
